FAERS Safety Report 4963277-X (Version None)
Quarter: 2006Q2

REPORT INFORMATION
  Report Type: 
  Country: None (occurrence: None)
  Receive Date: 20060405
  Receipt Date: 20050729
  Transmission Date: 20061013
  Serious: Yes (Death, Life-Threatening, Hospitalization, Disabling, Other)
  Sender: FDA-Public Use
  Company Number: US-MERCK-0508USA00353

PATIENT
  Age: 68 Year
  Sex: Female
  Weight: 86 kg

DRUGS (4)
  1. VIOXX [Suspect]
     Indication: ARTHRITIS
     Route: 048
     Dates: start: 20010401
  2. VIOXX [Suspect]
     Route: 048
     Dates: start: 20000523, end: 20040326
  3. VIOXX [Suspect]
     Indication: PAIN IN EXTREMITY
     Route: 048
     Dates: start: 20010401
  4. VIOXX [Suspect]
     Route: 048
     Dates: start: 20000523, end: 20040326

REACTIONS (50)
  - ACIDOSIS [None]
  - ACUTE RESPIRATORY DISTRESS SYNDROME [None]
  - ACUTE RESPIRATORY FAILURE [None]
  - ANAEMIA [None]
  - ATRIAL FIBRILLATION [None]
  - BRADYCARDIA [None]
  - BRAIN STEM INFARCTION [None]
  - BRONCHIECTASIS [None]
  - CANDIDIASIS [None]
  - CARDIAC ARREST [None]
  - CENTRAL LINE INFECTION [None]
  - CEREBRAL ARTERY STENOSIS [None]
  - CEREBRAL HAEMORRHAGE [None]
  - CEREBRAL ISCHAEMIA [None]
  - CEREBROVASCULAR ACCIDENT [None]
  - CEREBROVASCULAR DISORDER [None]
  - COMA [None]
  - CONVULSION [None]
  - DIZZINESS [None]
  - DYSURIA [None]
  - EAR PRURITUS [None]
  - ENTEROCOCCAL BACTERAEMIA [None]
  - FUNGAEMIA [None]
  - GASTROINTESTINAL HAEMORRHAGE [None]
  - HAEMODIALYSIS [None]
  - HYPERALDOSTERONISM [None]
  - HYPERTENSION [None]
  - HYPERTENSIVE HEART DISEASE [None]
  - HYPOKALAEMIA [None]
  - ISCHAEMIA [None]
  - KLEBSIELLA BACTERAEMIA [None]
  - NASAL CONGESTION [None]
  - OLIGURIA [None]
  - PNEUMONIA [None]
  - PUNCTURE SITE INFECTION [None]
  - RENAL FAILURE ACUTE [None]
  - RENAL FAILURE CHRONIC [None]
  - RESPIRATORY ARREST [None]
  - SHOCK HAEMORRHAGIC [None]
  - SINUS DISORDER [None]
  - SINUSITIS [None]
  - STAPHYLOCOCCAL BACTERAEMIA [None]
  - THROMBOCYTOPENIA [None]
  - TINNITUS [None]
  - TONGUE INJURY [None]
  - TRAUMATIC HAEMATOMA [None]
  - TREATMENT NONCOMPLIANCE [None]
  - VAGINAL DISORDER [None]
  - VENTRICULAR HYPERTROPHY [None]
  - VERTIGO [None]
